FAERS Safety Report 8816223 (Version 1)
Quarter: 2012Q4

REPORT INFORMATION
  Report Type: 
  Country: US (occurrence: US)
  Receive Date: 20120930
  Receipt Date: 20120930
  Transmission Date: 20130627
  Serious: No
  Sender: FDA-Public Use
  Company Number: US-ELI_LILLY_AND_COMPANY-US201209005223

PATIENT
  Age: 50 Year
  Sex: Male

DRUGS (2)
  1. CYMBALTA [Suspect]
     Indication: SURGERY
     Dosage: 60 mg, qd
     Dates: start: 2006
  2. SKELAXIN [Concomitant]
     Dosage: 800 mg, UNK

REACTIONS (6)
  - Off label use [Unknown]
  - Back pain [Unknown]
  - Hepatic enzyme increased [Unknown]
  - Chromaturia [Unknown]
  - Gingival ulceration [Unknown]
  - Perforated ulcer [Unknown]
